FAERS Safety Report 12679249 (Version 1)
Quarter: 2016Q3

REPORT INFORMATION
  Report Type: Spontaneous
  Country: US (occurrence: None)
  Receive Date: 20160823
  Receipt Date: 20160823
  Transmission Date: 20161109
  Serious: No
  Sender: FDA-Public Use
  Company Number: None

PATIENT
  Age: 72 Year
  Sex: Female
  Weight: 55.79 kg

DRUGS (4)
  1. HUMARIA [Concomitant]
  2. PENTASA [Concomitant]
     Active Substance: MESALAMINE
  3. ANUCORT-HC [Suspect]
     Active Substance: HYDROCORTISONE ACETATE
     Indication: HAEMORRHOIDS
     Dosage: 30 SUPPOSITORY (IES) TWICE A DAY RECTAL
     Route: 054
     Dates: start: 20160728
  4. CYMBALTA [Concomitant]
     Active Substance: DULOXETINE HYDROCHLORIDE

REACTIONS (7)
  - Product blister packaging issue [None]
  - Stress [None]
  - Product packaging quantity issue [None]
  - Incorrect product storage [None]
  - Product physical consistency issue [None]
  - Inappropriate schedule of drug administration [None]
  - Product quality issue [None]

NARRATIVE: CASE EVENT DATE: 20160728
